FAERS Safety Report 25734850 (Version 2)
Quarter: 2025Q3

REPORT INFORMATION
  Report Type: Report from Study
  Country: US (occurrence: US)
  Receive Date: 20250828
  Receipt Date: 20250909
  Transmission Date: 20251021
  Serious: Yes (Hospitalization)
  Sender: ABBVIE
  Company Number: US-ABBVIE-6435274

PATIENT
  Age: 64 Year
  Sex: Female
  Weight: 104.32 kg

DRUGS (4)
  1. SKYRIZI [Suspect]
     Active Substance: RISANKIZUMAB-RZAA
     Indication: Psoriasis
     Route: 058
     Dates: start: 20200414
  2. BETAMETHASONE [Concomitant]
     Active Substance: BETAMETHASONE
     Indication: Psoriasis
  3. ATENOLOL [Concomitant]
     Active Substance: ATENOLOL
     Indication: Product used for unknown indication
  4. CLOBETASOL [Concomitant]
     Active Substance: CLOBETASOL
     Indication: Dermatitis

REACTIONS (5)
  - Wound infection [Unknown]
  - Dermal cyst [Unknown]
  - Xanthoma [Unknown]
  - Seborrhoeic keratosis [Unknown]
  - Skin ulcer [Unknown]

NARRATIVE: CASE EVENT DATE: 20221007
